FAERS Safety Report 5291301-6 (Version None)
Quarter: 2007Q2

REPORT INFORMATION
  Report Type: 
  Country: None (occurrence: None)
  Receive Date: 20070409
  Receipt Date: 20070330
  Transmission Date: 20071010
  Serious: Yes (Death)
  Sender: FDA-Public Use
  Company Number: AT-ABBOTT-07P-009-0359817-00

PATIENT
  Age: 71 Year
  Sex: Female
  Weight: 48 kg

DRUGS (3)
  1. ZEMPLAR [Suspect]
     Indication: HYPERPARATHYROIDISM SECONDARY
     Route: 042
     Dates: start: 20060411, end: 20060824
  2. ANTIPHOSPHAT [Concomitant]
     Indication: DRUG USE FOR UNKNOWN INDICATION
     Route: 048
     Dates: end: 20060807
  3. SEVELAMER HYDROCHLORIDE [Concomitant]
     Indication: DRUG USE FOR UNKNOWN INDICATION
     Route: 048
     Dates: start: 20060711, end: 20060807

REACTIONS (4)
  - GASTROINTESTINAL NECROSIS [None]
  - INTESTINAL PERFORATION [None]
  - PERITONEAL INFECTION [None]
  - SEPSIS [None]
